FAERS Safety Report 9415523 (Version 2)
Quarter: 2013Q3

REPORT INFORMATION
  Report Type: Spontaneous
  Country: IT (occurrence: IT)
  Receive Date: 20130723
  Receipt Date: 20130812
  Transmission Date: 20140515
  Serious: Yes (Other)
  Sender: FDA-Public Use
  Company Number: IT-PFIZER INC-2013213877

PATIENT
  Sex: Male

DRUGS (2)
  1. EFEXOR ER [Suspect]
     Dosage: 150 MG, 1X/DAY(IN THE MORNING AFTER BREAKFAST)
     Dates: start: 2011
  2. EN [Suspect]
     Dosage: 56 DROPS BEFORE GOING TO BED

REACTIONS (6)
  - Drug dependence [Not Recovered/Not Resolved]
  - Withdrawal syndrome [Not Recovered/Not Resolved]
  - Headache [Not Recovered/Not Resolved]
  - Abdominal discomfort [Not Recovered/Not Resolved]
  - Sleep disorder [Not Recovered/Not Resolved]
  - Asthenia [Not Recovered/Not Resolved]
